FAERS Safety Report 19822915 (Version 3)
Quarter: 2021Q4

REPORT INFORMATION
  Report Type: Report from Study
  Country: NL (occurrence: NL)
  Receive Date: 20210913
  Receipt Date: 20211111
  Transmission Date: 20220304
  Serious: Yes (Death, Life-Threatening, Hospitalization)
  Sender: FDA-Public Use
  Company Number: NL-NOVARTISPH-NVSC2021NL197109

PATIENT
  Age: 72 Year
  Sex: Male

DRUGS (4)
  1. MIDOSTAURIN [Suspect]
     Active Substance: MIDOSTAURIN
     Indication: Acute myeloid leukaemia
     Dosage: 100 MG
     Route: 048
     Dates: start: 20210816, end: 20210831
  2. MIDOSTAURIN [Suspect]
     Active Substance: MIDOSTAURIN
     Indication: Myelodysplastic syndrome
  3. DECITABINE [Suspect]
     Active Substance: DECITABINE
     Indication: Acute myeloid leukaemia
     Dosage: 40 MG
     Route: 042
     Dates: start: 20210806, end: 20210815
  4. DECITABINE [Suspect]
     Active Substance: DECITABINE
     Indication: Myelodysplastic syndrome
     Dosage: 40 MG
     Route: 042
     Dates: start: 20210903, end: 20210905

REACTIONS (4)
  - Atrioventricular block complete [Fatal]
  - Pneumonia [Fatal]
  - Septic shock [Fatal]
  - Venous injury [Recovered/Resolved]

NARRATIVE: CASE EVENT DATE: 20210829
